FAERS Safety Report 7252420-8 (Version None)
Quarter: 2011Q1

REPORT INFORMATION
  Report Type: 
  Country: None (occurrence: None)
  Receive Date: 20110129
  Receipt Date: 20100119
  Transmission Date: 20110831
  Serious: No
  Sender: FDA-Public Use
  Company Number: US-ABBOTT-09P-163-0604629-00

PATIENT
  Sex: Female
  Weight: 63.56 kg

DRUGS (5)
  1. TOPICAL CREAM [Concomitant]
     Indication: PSORIASIS
     Route: 061
  2. HUMIRA [Suspect]
     Route: 058
     Dates: start: 20091001
  3. TOPAMAX [Concomitant]
     Indication: HEADACHE
  4. ESTROGENIC SUBSTANCE [Concomitant]
     Indication: HORMONE REPLACEMENT THERAPY
  5. HUMIRA [Suspect]
     Indication: PSORIASIS
     Route: 058
     Dates: start: 20080801, end: 20091001

REACTIONS (5)
  - EYE DISORDER [None]
  - VISUAL IMPAIRMENT [None]
  - MYALGIA [None]
  - VITREOUS FLOATERS [None]
  - DIZZINESS [None]
